FAERS Safety Report 8417094-9 (Version None)
Quarter: 2012Q2

REPORT INFORMATION
  Report Type: 
  Country: None (occurrence: None)
  Receive Date: 20120606
  Receipt Date: 20120529
  Transmission Date: 20120825
  Serious: Yes (Hospitalization, Other)
  Sender: FDA-Public Use
  Company Number: IT-BRISTOL-MYERS SQUIBB COMPANY-16490724

PATIENT
  Age: 61 Year
  Sex: Female

DRUGS (8)
  1. COUMADIN [Suspect]
     Indication: CARDIAC VALVE PROSTHESIS USER
     Dates: start: 20050101, end: 20120309
  2. AMPICILLIN [Concomitant]
  3. KETOROLAC TROMETHAMINE [Suspect]
     Dosage: WITH 100ML OF SODIUM CHLORIDE
     Route: 042
  4. ENOXAPARIN SODIUM [Suspect]
     Route: 058
  5. SELEPARINA [Suspect]
     Indication: CARDIAC VALVE PROSTHESIS USER
     Route: 058
     Dates: start: 20120309, end: 20120318
  6. PROPAFENONE HCL [Concomitant]
     Indication: ATRIAL FIBRILLATION
  7. LEVOFLOXACIN [Suspect]
     Route: 048
  8. KARVEA [Concomitant]
     Indication: HYPERTENSION

REACTIONS (2)
  - BLOOD URINE PRESENT [None]
  - HYDRONEPHROSIS [None]
